FAERS Safety Report 12095826 (Version 2)
Quarter: 2016Q1

REPORT INFORMATION
  Report Type: Spontaneous
  Country: JP (occurrence: JP)
  Receive Date: 20160220
  Receipt Date: 20160301
  Transmission Date: 20160526
  Serious: Yes (Death)
  Sender: FDA-Public Use
  Company Number: JP-UCBSA-2016006246

PATIENT
  Age: 46 Year
  Sex: Male

DRUGS (11)
  1. KEPPRA [Suspect]
     Active Substance: LEVETIRACETAM
     Dosage: 2500 MG DAILY
     Route: 048
     Dates: start: 20141025, end: 20141104
  2. TEMODAL [Concomitant]
     Active Substance: TEMOZOLOMIDE
     Dosage: 260 MG DAILY
     Route: 048
     Dates: start: 20141217, end: 20150506
  3. LANSOPRAZOLE. [Suspect]
     Active Substance: LANSOPRAZOLE
     Indication: PRODUCT USED FOR UNKNOWN INDICATION
     Dosage: 15 MG DAILY
     Route: 048
     Dates: start: 20140908, end: 20150607
  4. BETAMETHASONE. [Concomitant]
     Active Substance: BETAMETHASONE
     Indication: PRODUCT USED FOR UNKNOWN INDICATION
     Dosage: 2 MG DAILY
     Route: 048
     Dates: start: 20140924, end: 20150607
  5. KEPPRA [Suspect]
     Active Substance: LEVETIRACETAM
     Dosage: 3000 MG DAILY
     Route: 048
     Dates: start: 20141105, end: 20150607
  6. SULFAMETHOXAZOLE AND TRIMETHOPRIM [Concomitant]
     Active Substance: SULFAMETHOXAZOLE\TRIMETHOPRIM
     Indication: PRODUCT USED FOR UNKNOWN INDICATION
     Dosage: UNK
     Route: 048
     Dates: start: 20141008, end: 20150607
  7. KEPPRA [Suspect]
     Active Substance: LEVETIRACETAM
     Indication: EPILEPSY
     Dosage: 1000 MG, ONCE DAILY (QD)
     Route: 048
     Dates: start: 20140908, end: 20140923
  8. CARBAMAZEPINE. [Suspect]
     Active Substance: CARBAMAZEPINE
     Indication: PRODUCT USED FOR UNKNOWN INDICATION
     Dosage: 200 MG DAILY
     Route: 048
     Dates: start: 20140908, end: 20150404
  9. MAGNESIUM OXIDE. [Concomitant]
     Active Substance: MAGNESIUM OXIDE
     Indication: PRODUCT USED FOR UNKNOWN INDICATION
     Dosage: 990 MG DAILY
     Route: 048
     Dates: start: 20140924, end: 20150607
  10. TEMODAL [Concomitant]
     Active Substance: TEMOZOLOMIDE
     Indication: PRODUCT USED FOR UNKNOWN INDICATION
     Dosage: 120 MG DAILY
     Route: 048
     Dates: start: 20141008, end: 20141118
  11. KEPPRA [Suspect]
     Active Substance: LEVETIRACETAM
     Dosage: 2000 MG, ONCE DAILY (QD)
     Route: 048
     Dates: start: 20140924, end: 20141025

REACTIONS (2)
  - Glioblastoma [Fatal]
  - Hyponatraemia [Not Recovered/Not Resolved]

NARRATIVE: CASE EVENT DATE: 20141014
